FAERS Safety Report 6721196-2 (Version None)
Quarter: 2010Q2

REPORT INFORMATION
  Report Type: 
  Country: None (occurrence: None)
  Receive Date: 20100512
  Receipt Date: 20100512
  Transmission Date: 20101027
  Serious: Yes (Other)
  Sender: FDA-Public Use
  Company Number: None

PATIENT
  Age: 19 Month
  Sex: Male
  Weight: 4 kg

DRUGS (4)
  1. CHILDREN'S TYLENOL 160MG PER 5ML MCNEIL [Suspect]
     Indication: PYREXIA
     Dosage: 5ML EVERY 12 HRS PO
     Route: 048
     Dates: start: 20100509, end: 20100511
  2. CHILDREN'S MOTRIN [Suspect]
     Indication: PYREXIA
     Dosage: 5ML EVERY 12 HRS PO
     Route: 048
     Dates: start: 20100509, end: 20100511
  3. CHILDREN'S MOTRIN [Concomitant]
  4. TYLENOL-500 [Concomitant]

REACTIONS (6)
  - ABDOMINAL DISCOMFORT [None]
  - CRYING [None]
  - MIDDLE INSOMNIA [None]
  - MOANING [None]
  - RESTLESSNESS [None]
  - VOMITING [None]
